FAERS Safety Report 14651121 (Version 1)
Quarter: 2018Q1

REPORT INFORMATION
  Report Type: Report from Study
  Country: ES (occurrence: ES)
  Receive Date: 20180316
  Receipt Date: 20180316
  Transmission Date: 20180509
  Serious: Yes (Death, Hospitalization)
  Sender: FDA-Public Use
  Company Number: ES-PFIZER INC-2018108754

PATIENT
  Age: 66 Year
  Sex: Male
  Weight: 99 kg

DRUGS (10)
  1. AFLIBERCEPT [Suspect]
     Active Substance: AFLIBERCEPT
     Indication: COLORECTAL CANCER
     Dosage: 316 MG, EVERY 2 WEEKS
     Route: 042
     Dates: start: 20170918, end: 20170918
  2. FOLINIC ACID [Suspect]
     Active Substance: LEUCOVORIN
     Indication: COLORECTAL CANCER
     Dosage: 784.8 MG, EVERY 2 WEEKS
     Route: 042
     Dates: start: 20170918, end: 20170918
  3. AFLIBERCEPT [Suspect]
     Active Substance: AFLIBERCEPT
     Dosage: 316 MG, EVERY 2 WEEKS
     Route: 042
     Dates: start: 20171016, end: 20171016
  4. IRINOTECAN HCL [Suspect]
     Active Substance: IRINOTECAN HYDROCHLORIDE
     Indication: COLORECTAL CANCER
     Dosage: 353.16 MG, EVERY 2 WEEKS
     Route: 042
     Dates: start: 20170918, end: 20170918
  5. FLUOROURACIL. [Suspect]
     Active Substance: FLUOROURACIL
     Indication: COLORECTAL CANCER
     Dosage: 4708.8 MG, EVERY 2 WEEKS
     Route: 042
     Dates: start: 20170918, end: 20170918
  6. FLUOROURACIL. [Suspect]
     Active Substance: FLUOROURACIL
     Dosage: 784.8 MG, EVERY 2 WEEKS
     Route: 040
     Dates: start: 20171016, end: 20171016
  7. IRINOTECAN HCL [Suspect]
     Active Substance: IRINOTECAN HYDROCHLORIDE
     Dosage: 353.16 MG, EVERY 2 WEEKS
     Route: 042
     Dates: start: 20171016, end: 20171016
  8. FLUOROURACIL. [Suspect]
     Active Substance: FLUOROURACIL
     Dosage: 784.8 MG, EVERY 2 WEEKS
     Route: 040
     Dates: start: 20170918, end: 20170918
  9. FLUOROURACIL. [Suspect]
     Active Substance: FLUOROURACIL
     Dosage: 4708.8 MG, EVERY 2 WEEKS
     Route: 042
     Dates: start: 20171016, end: 20171016
  10. FOLINIC ACID [Suspect]
     Active Substance: LEUCOVORIN
     Dosage: 784.8 MG, EVERY 2 WEEKS
     Route: 042
     Dates: start: 20171016, end: 20171016

REACTIONS (1)
  - Hepatic encephalopathy [Fatal]

NARRATIVE: CASE EVENT DATE: 20171025
